FAERS Safety Report 23853402 (Version 1)
Quarter: 2024Q2

REPORT INFORMATION
  Report Type: Spontaneous
  Country: US (occurrence: None)
  Receive Date: 20240513
  Receipt Date: 20240513
  Transmission Date: 20240716
  Serious: Yes (Death, Hospitalization)
  Sender: FDA-Public Use
  Company Number: None

PATIENT
  Age: 92 Year
  Sex: Male

DRUGS (1)
  1. POMALYST [Suspect]
     Active Substance: POMALIDOMIDE
     Indication: Plasma cell myeloma
     Dosage: FREQUENCY : DAILY;?
     Route: 048
     Dates: start: 20220823, end: 20231230

REACTIONS (5)
  - Subdural haematoma [None]
  - Fall [None]
  - Haemoglobin decreased [None]
  - Pyrexia [None]
  - Plasma cell myeloma [None]

NARRATIVE: CASE EVENT DATE: 20231227
